FAERS Safety Report 4906093-7 (Version None)
Quarter: 2006Q1

REPORT INFORMATION
  Report Type: 
  Country: None (occurrence: None)
  Receive Date: 20060207
  Receipt Date: 20060207
  Transmission Date: 20060701
  Serious: No
  Sender: FDA-Public Use
  Company Number: None

PATIENT
  Age: 85 Year
  Sex: Male
  Weight: 91.1 kg

DRUGS (2)
  1. CEFTRIAXONE [Suspect]
     Dates: start: 20051114, end: 20051115
  2. CEFUROXIME AXETIL [Suspect]
     Dates: start: 20051117

REACTIONS (1)
  - CLOSTRIDIAL INFECTION [None]
